FAERS Safety Report 8622566-8 (Version None)
Quarter: 2012Q3

REPORT INFORMATION
  Report Type: 
  Country: None (occurrence: None)
  Receive Date: 20120827
  Receipt Date: 20120820
  Transmission Date: 20120928
  Serious: Yes (Other)
  Sender: FDA-Public Use
  Company Number: JP-SP-2012-07863

PATIENT
  Age: 66 Year
  Sex: Female

DRUGS (1)
  1. IMMUCYST [Suspect]
     Indication: BLADDER CANCER
     Route: 043
     Dates: end: 20120718

REACTIONS (6)
  - REITER'S SYNDROME [None]
  - EYE IRRITATION [None]
  - EYE PRURITUS [None]
  - EYE INFLAMMATION [None]
  - ARTHRITIS [None]
  - ARTHRALGIA [None]
